FAERS Safety Report 24794203 (Version 1)
Quarter: 2024Q4

REPORT INFORMATION
  Report Type: Spontaneous
  Country: US (occurrence: US)
  Receive Date: 20241231
  Receipt Date: 20241231
  Transmission Date: 20250115
  Serious: Yes (Other)
  Sender: BAYER HEALTHCARE LLC
  Company Number: US-BAYER-2024A182814

PATIENT

DRUGS (1)
  1. AFRIN NO DRIP ORIGINAL PUMP MIST [Suspect]
     Active Substance: OXYMETAZOLINE HYDROCHLORIDE
     Dosage: SEVERAL TIMES A DAY

REACTIONS (4)
  - Drug dependence [Unknown]
  - Nasal congestion [Unknown]
  - Insomnia [Unknown]
  - Dyspnoea [Unknown]
